FAERS Safety Report 5797609-X (Version None)
Quarter: 2008Q2

REPORT INFORMATION
  Report Type: 
  Country: None (occurrence: None)
  Receive Date: 20080630
  Receipt Date: 20080612
  Transmission Date: 20081010
  Serious: Yes (Hospitalization, Other)
  Sender: FDA-Public Use
  Company Number: ALA_00071_2008

PATIENT
  Sex: Female

DRUGS (3)
  1. REGLAN [Suspect]
     Indication: VOMITING
     Dosage: (DF)
     Dates: start: 20040901
  2. ZOFRAN [Suspect]
     Indication: VOMITING
     Dosage: (DF)
     Dates: start: 20040901
  3. PHENERGAN [Suspect]
     Indication: VOMITING
     Dosage: (DF)
     Dates: start: 20040901, end: 20040901

REACTIONS (5)
  - ANTEPARTUM HAEMORRHAGE [None]
  - DRUG EXPOSURE DURING PREGNANCY [None]
  - FOETAL HEART RATE INCREASED [None]
  - INTRA-UTERINE DEATH [None]
  - MATERNAL DRUGS AFFECTING FOETUS [None]
